FAERS Safety Report 9546537 (Version 1)
Quarter: 2013Q3

REPORT INFORMATION
  Report Type: Spontaneous
  Country: AT (occurrence: AT)
  Receive Date: 20130923
  Receipt Date: 20130923
  Transmission Date: 20140515
  Serious: Yes (Death, Hospitalization)
  Sender: FDA-Public Use
  Company Number: AT-BAYER-2013-112247

PATIENT
  Sex: Male

DRUGS (6)
  1. XARELTO [Suspect]
     Indication: ATRIAL FIBRILLATION
     Dosage: 20 MG, QD
     Dates: start: 201302
  2. XARELTO [Interacting]
     Indication: CEREBROVASCULAR ACCIDENT PROPHYLAXIS
  3. ASS [Interacting]
     Dosage: 100 MG, QD
  4. ALLOPURINOL [Concomitant]
     Dosage: 300 MG, UNK
  5. SIMVASTATIN [Concomitant]
     Dosage: 40 MG, UNK
  6. BLOPRESS [Concomitant]

REACTIONS (4)
  - Cerebral haemorrhage [Fatal]
  - Vertigo [None]
  - Visual impairment [None]
  - Drug interaction [None]
